FAERS Safety Report 10015195 (Version 2)
Quarter: 2014Q2

REPORT INFORMATION
  Report Type: Spontaneous
  Country: US (occurrence: US)
  Receive Date: 20140317
  Receipt Date: 20140417
  Transmission Date: 20141212
  Serious: No
  Sender: FDA-Public Use
  Company Number: US-BAXTER-2014BAX013168

PATIENT
  Sex: Female

DRUGS (1)
  1. DIANEAL PD2 [Suspect]
     Indication: PERITONEAL DIALYSIS
     Route: 033

REACTIONS (5)
  - Blood pressure abnormal [Recovered/Resolved]
  - Oedema [Recovered/Resolved]
  - Joint swelling [Recovered/Resolved]
  - Hypertension [Recovered/Resolved]
  - Fluid retention [Recovered/Resolved]
